FAERS Safety Report 9828448 (Version 1)
Quarter: 2014Q1

REPORT INFORMATION
  Report Type: Spontaneous
  Country: FR (occurrence: FR)
  Receive Date: 20140117
  Receipt Date: 20140117
  Transmission Date: 20141002
  Serious: Yes (Hospitalization, Other)
  Sender: FDA-Public Use
  Company Number: FR-ELI_LILLY_AND_COMPANY-FR201401001010

PATIENT
  Age: 70 Year
  Sex: Male

DRUGS (18)
  1. ALIMTA [Suspect]
     Indication: PRODUCT USED FOR UNKNOWN INDICATION
     Dosage: 1000 MG, CYCLICAL
     Route: 042
     Dates: start: 20130726, end: 20130726
  2. ALIMTA [Suspect]
     Dosage: 750 MG, CYCLICAL
     Route: 042
     Dates: start: 20130902
  3. ALIMTA [Suspect]
     Dosage: 750 MG, CYCLICAL
     Dates: start: 20130930
  4. CARBOPLATINE [Suspect]
     Indication: PRODUCT USED FOR UNKNOWN INDICATION
     Dosage: 780 MG, UNK
     Route: 042
     Dates: start: 20130726, end: 20130726
  5. CARBOPLATINE [Suspect]
     Dosage: 500 MG, CYCLICAL
     Dates: start: 20130902, end: 20130930
  6. DIGOXINE NATIVELLE [Suspect]
     Dosage: 0.25 MG, QD
     Dates: start: 201308, end: 20130919
  7. AMAREL [Concomitant]
     Dosage: 2 MG, QD
  8. EUPANTOL [Concomitant]
     Dosage: 40 MG, QD
  9. SPECIAFOLDINE [Concomitant]
     Dosage: 0.4 MG, QD
  10. INNOHEP [Concomitant]
     Dosage: 18000 IU, UNK
  11. CORDARONE [Concomitant]
     Dosage: 200 MG, UNK
     Dates: start: 201308
  12. TAHOR [Concomitant]
     Dosage: 10 MG, UNK
  13. RENITEC                            /00574902/ [Concomitant]
     Dosage: 5 MG, QD
  14. LASILIX                            /00032601/ [Concomitant]
     Dosage: 40 MG, QD
  15. LEXOMIL [Concomitant]
     Dosage: 0.25 MG, QD
  16. SOLUPRED                           /00016201/ [Concomitant]
     Dosage: 80 MG, OTHER
  17. MOTILIUM                           /00498201/ [Concomitant]
     Dosage: 3 DF, QD
  18. GAVISCON                           /01279001/ [Concomitant]

REACTIONS (16)
  - Epilepsy [Unknown]
  - Malignant neoplasm progression [Not Recovered/Not Resolved]
  - Renal failure [Recovered/Resolved]
  - Pancytopenia [Unknown]
  - Hypomagnesaemia [Recovering/Resolving]
  - Hypocalcaemia [Recovering/Resolving]
  - Overdose [Unknown]
  - Arrhythmia [Unknown]
  - General physical health deterioration [Recovered/Resolved]
  - Asthenia [Recovered/Resolved]
  - Arrhythmia [Unknown]
  - Nausea [Unknown]
  - Malnutrition [Unknown]
  - Hypoglycaemia [Unknown]
  - Off label use [Recovered/Resolved]
  - Arrhythmia [Unknown]
